FAERS Safety Report 13349351 (Version 3)
Quarter: 2017Q1

REPORT INFORMATION
  Report Type: Spontaneous
  Country: US (occurrence: US)
  Receive Date: 20170320
  Receipt Date: 20170328
  Transmission Date: 20170428
  Serious: Yes (Hospitalization, Other)
  Sender: FDA-Public Use
  Company Number: US-DRREDDYS-USA/USA/17/0087911

PATIENT
  Age: 41 Year
  Sex: Male
  Weight: 83.91 kg

DRUGS (2)
  1. HABITROL [Suspect]
     Active Substance: NICOTINE
     Indication: SMOKING CESSATION THERAPY
     Route: 062
     Dates: start: 20170308, end: 20170309
  2. REMERON [Concomitant]
     Active Substance: MIRTAZAPINE
     Indication: PRODUCT USED FOR UNKNOWN INDICATION
     Route: 065

REACTIONS (6)
  - Application site erythema [Recovered/Resolved]
  - Erythema [Recovered/Resolved]
  - Agitation [Unknown]
  - Anxiety [Not Recovered/Not Resolved]
  - Altered state of consciousness [Unknown]
  - Unevaluable event [Unknown]
